FAERS Safety Report 6383864-4 (Version None)
Quarter: 2009Q3

REPORT INFORMATION
  Report Type: 
  Country: None (occurrence: None)
  Receive Date: 20090929
  Receipt Date: 20090929
  Transmission Date: 20100115
  Serious: Yes (Other)
  Sender: FDA-Public Use
  Company Number: None

PATIENT
  Age: 73 Year
  Sex: Female
  Weight: 54.4316 kg

DRUGS (1)
  1. PHENYTOIN SODIUM [Suspect]
     Indication: CONVULSION
     Dosage: 100 MG THREE TIMES DAILY PO
     Route: 048
     Dates: start: 20090712, end: 20090714

REACTIONS (3)
  - CONVULSION [None]
  - DYSARTHRIA [None]
  - PRODUCT SUBSTITUTION ISSUE [None]
